FAERS Safety Report 5082373-2 (Version None)
Quarter: 2006Q3

REPORT INFORMATION
  Report Type: 
  Country: None (occurrence: None)
  Receive Date: 20060817
  Receipt Date: 20060328
  Transmission Date: 20061208
  Serious: Yes (Hospitalization)
  Sender: FDA-Public Use
  Company Number: US-BAYER-200612108BWH

PATIENT
  Age: 70 Year
  Sex: Male
  Weight: 90 kg

DRUGS (8)
  1. NEXAVAR [Suspect]
     Indication: RENAL CELL CARCINOMA STAGE UNSPECIFIED
     Dosage: TOTAL DAILY DOSE: 800 MG  UNIT DOSE: 200 MG
     Route: 048
     Dates: start: 20060206, end: 20060201
  2. NEXAVAR [Suspect]
     Dosage: TOTAL DAILY DOSE: 400 MG  UNIT DOSE: 200 MG
     Route: 048
     Dates: start: 20060201, end: 20060101
  3. NEXAVAR [Suspect]
     Dosage: TOTAL DAILY DOSE: 400 MG  UNIT DOSE: 200 MG
     Route: 048
     Dates: start: 20060101
  4. PROPAFENONE HCL [Concomitant]
     Dosage: TOTAL DAILY DOSE: 450 MG
     Route: 048
  5. AMLODIPINE BESYLATE [Concomitant]
     Dosage: TOTAL DAILY DOSE: 10 MG
     Route: 048
  6. METOPROLOL TARTRATE [Concomitant]
     Dosage: TOTAL DAILY DOSE: 50 MG
     Route: 048
  7. SUCRALFATE [Concomitant]
     Dosage: TOTAL DAILY DOSE: 1 G
     Route: 048
  8. COUMADIN [Concomitant]

REACTIONS (9)
  - ALOPECIA [None]
  - BLISTER [None]
  - DIARRHOEA [None]
  - DYSPHONIA [None]
  - OEDEMA PERIPHERAL [None]
  - PALMAR-PLANTAR ERYTHRODYSAESTHESIA SYNDROME [None]
  - RASH [None]
  - VOCAL CORD DISORDER [None]
  - VOCAL CORD PARALYSIS [None]
